FAERS Safety Report 5660063-2 (Version None)
Quarter: 2008Q1

REPORT INFORMATION
  Report Type: 
  Country: None (occurrence: None)
  Receive Date: 20080311
  Receipt Date: 20071212
  Transmission Date: 20080703
  Serious: No
  Sender: FDA-Public Use
  Company Number: US-BAYER-200712796BCC

PATIENT
  Age: 78 Year
  Sex: Female
  Weight: 86 kg

DRUGS (9)
  1. ALEVE [Suspect]
     Indication: ARTHRITIS
     Dosage: UNIT DOSE: 220 MG
     Route: 048
     Dates: start: 20070829
  2. COGENTIN [Concomitant]
  3. PROLIXIN [Concomitant]
  4. TOPROL [Concomitant]
  5. ENALAPRIL MALEATE [Concomitant]
  6. PLAVIX [Concomitant]
  7. ASPIRIN [Concomitant]
  8. TORSEMIDE [Concomitant]
  9. PRAVASTATIN [Concomitant]

REACTIONS (1)
  - TREMOR [None]
